FAERS Safety Report 10047599 (Version 6)
Quarter: 2015Q1

REPORT INFORMATION
  Report Type: Spontaneous
  Country: US (occurrence: US)
  Receive Date: 20140331
  Receipt Date: 20150225
  Transmission Date: 20150720
  Serious: Yes (Hospitalization, Other)
  Sender: FDA-Public Use
  Company Number: US-009507513-1205USA02804

PATIENT
  Sex: Male
  Weight: 105.67 kg

DRUGS (2)
  1. ALENDRONATE SODIUM. [Suspect]
     Active Substance: ALENDRONATE SODIUM
     Indication: OSTEOPOROSIS
     Dosage: 70 MG, UNK
     Dates: start: 20080218, end: 20100904
  2. FOSAMAX [Suspect]
     Active Substance: ALENDRONATE SODIUM
     Indication: OSTEOPOROSIS
     Dosage: 70 MG, UNK
     Route: 048
     Dates: start: 20060516, end: 20080119

REACTIONS (73)
  - Headache [Unknown]
  - Victim of crime [Unknown]
  - Tibia fracture [Unknown]
  - Internal fixation of fracture [Unknown]
  - Rotator cuff repair [Unknown]
  - Osteomyelitis [Unknown]
  - Fracture malunion [Unknown]
  - Memory impairment [Unknown]
  - Abdominal pain [Unknown]
  - Femur fracture [Recovering/Resolving]
  - Fibula fracture [Unknown]
  - Road traffic accident [Unknown]
  - Hypertension [Unknown]
  - Diverticulitis [Unknown]
  - Medical device removal [Unknown]
  - Device failure [Unknown]
  - Vagotomy [Unknown]
  - Road traffic accident [Unknown]
  - Tibia fracture [Recovered/Resolved]
  - Wound infection [Unknown]
  - Chronic sinusitis [Not Recovered/Not Resolved]
  - Colostomy closure [Recovered/Resolved]
  - Limb asymmetry [Unknown]
  - Road traffic accident [Unknown]
  - Rib fracture [Unknown]
  - Limb deformity [Unknown]
  - Asthenia [Unknown]
  - Fibula fracture [Unknown]
  - Intramedullary rod insertion [Unknown]
  - Gastrectomy [Unknown]
  - Surgery [Unknown]
  - Depression [Not Recovered/Not Resolved]
  - Anxiety [Not Recovered/Not Resolved]
  - Barrett^s oesophagus [Unknown]
  - Osteoarthritis [Unknown]
  - Arthroscopy [Unknown]
  - Gout [Unknown]
  - Fibromyalgia [Unknown]
  - Limb deformity [Unknown]
  - Medical device removal [Unknown]
  - Neck pain [Not Recovered/Not Resolved]
  - Appendicectomy [Unknown]
  - Femur fracture [Unknown]
  - Intramedullary rod insertion [Unknown]
  - Spinal fusion surgery [Unknown]
  - Impaired healing [Unknown]
  - Major depression [Recovering/Resolving]
  - Blood alcohol increased [Unknown]
  - Back pain [Not Recovered/Not Resolved]
  - Ankle operation [Unknown]
  - Carpal tunnel decompression [Unknown]
  - Impaired healing [Unknown]
  - Pain [Unknown]
  - Open reduction of fracture [Unknown]
  - Cholecystectomy [Unknown]
  - Knee arthroplasty [Unknown]
  - Limb crushing injury [Unknown]
  - Debridement [Unknown]
  - Pain in extremity [Unknown]
  - Transaminases increased [Unknown]
  - Dehydration [Unknown]
  - Intramedullary rod insertion [Unknown]
  - Colectomy [Unknown]
  - Ankle fracture [Unknown]
  - Joint crepitation [Unknown]
  - Dyspnoea [Unknown]
  - Pain in extremity [Unknown]
  - Dizziness [Unknown]
  - Bipolar disorder [Unknown]
  - Open reduction of fracture [Unknown]
  - Limb injury [Unknown]
  - Blood cholesterol increased [Unknown]
  - Sleep apnoea syndrome [Unknown]

NARRATIVE: CASE EVENT DATE: 200701
